FAERS Safety Report 9290182 (Version 3)
Quarter: 2013Q4

REPORT INFORMATION
  Report Type: Spontaneous
  Country: US (occurrence: US)
  Receive Date: 20130515
  Receipt Date: 20131112
  Transmission Date: 20140711
  Serious: Yes (Hospitalization)
  Sender: FDA-Public Use
  Company Number: US-B.I. PHARMACEUTICALS,INC./RIDGEFIELD-2013-BI-13284BP

PATIENT
  Sex: Male
  Weight: 113.4 kg

DRUGS (22)
  1. PRADAXA [Suspect]
     Indication: ATRIAL FIBRILLATION
     Dosage: 300 MG
     Dates: start: 20110502, end: 20110508
  2. ASPIRIN [Concomitant]
     Dosage: 81 MG
  3. COREG [Concomitant]
     Dosage: 12.5 MG
  4. FLOMAX [Concomitant]
     Dosage: 0.4 MG
  5. LASIX [Concomitant]
     Dosage: 80 MG
  6. MIRALAX [Concomitant]
     Dosage: 17 G
  7. CONVALLARIA MAJALIS\CRATAEGUS LAEVIGATA LEAF\PROXYPHYLLINE [Concomitant]
  8. OMEPRAZOLE [Concomitant]
     Dosage: 20 MG
     Dates: start: 2010, end: 2012
  9. OXYCODONE [Concomitant]
     Indication: PAIN
     Dates: start: 2006, end: 2012
  10. MORPHINE [Concomitant]
  11. POTASSIUM [Concomitant]
     Dosage: 40 MEQ
  12. PRANDIN [Concomitant]
     Dosage: 1.5 MG
  13. REGLAN [Concomitant]
     Dosage: 20 MG
  14. SIMVASTATIN [Concomitant]
     Dosage: 40 MG
     Dates: start: 2010, end: 2012
  15. VITAMIN D3 [Concomitant]
     Dosage: 2000 U
  16. SULFASALAZINE [Concomitant]
     Dates: start: 2006, end: 2012
  17. PREDNISONE [Concomitant]
     Dates: start: 2006, end: 2012
  18. FLUCONAZOLE [Concomitant]
     Dates: start: 2007, end: 2012
  19. ONDANSETRON [Concomitant]
     Dates: start: 2008, end: 2012
  20. METROGEL [Concomitant]
     Dates: start: 2009, end: 2012
  21. LISINOPRIL [Concomitant]
     Dates: start: 2010, end: 2012
  22. POLYETHYLENE GLYCOL [Concomitant]
     Dates: start: 2010, end: 2012

REACTIONS (4)
  - Lower gastrointestinal haemorrhage [Unknown]
  - Coagulopathy [Unknown]
  - Acute myocardial infarction [Unknown]
  - Anaemia [Unknown]
